FAERS Safety Report 7865053-7 (Version None)
Quarter: 2011Q4

REPORT INFORMATION
  Report Type: 
  Country: None (occurrence: None)
  Receive Date: 20111028
  Receipt Date: 20101006
  Transmission Date: 20120403
  Serious: No
  Sender: FDA-Public Use
  Company Number: US-GLAXOSMITHKLINE-A0885243A

PATIENT
  Age: 82 Year
  Sex: Female

DRUGS (8)
  1. ASPIRIN [Concomitant]
  2. AMARYL [Concomitant]
  3. METFORMIN HCL [Concomitant]
  4. LOVASTATIN [Concomitant]
  5. LOTENSIN [Concomitant]
  6. ADVAIR DISKUS 100/50 [Suspect]
     Indication: CHRONIC OBSTRUCTIVE PULMONARY DISEASE
     Dosage: 1PUFF TWICE PER DAY
     Route: 055
     Dates: start: 20100901
  7. CENTRUM [Concomitant]
  8. VERAPAMIL [Concomitant]

REACTIONS (1)
  - DYSPHONIA [None]
